FAERS Safety Report 11309371 (Version 1)
Quarter: 2015Q3

REPORT INFORMATION
  Report Type: Spontaneous
  Country: US (occurrence: US)
  Receive Date: 20150724
  Receipt Date: 20150724
  Transmission Date: 20151125
  Serious: No
  Sender: FDA-Public Use
  Company Number: US-TEVA-580694ACC

PATIENT
  Age: 26 Year
  Sex: Female
  Weight: 77.18 kg

DRUGS (2)
  1. TAKE ACTION [Suspect]
     Active Substance: LEVONORGESTREL
     Indication: POST COITAL CONTRACEPTION
     Dosage: 1.5 MILLIGRAM DAILY;
     Route: 048
     Dates: start: 20150718, end: 20150718
  2. ALBUTEROL INHALER PRN [Concomitant]
     Indication: ASTHMA

REACTIONS (1)
  - Exposure during breast feeding [Unknown]

NARRATIVE: CASE EVENT DATE: 20150718
